FAERS Safety Report 5601394-1 (Version None)
Quarter: 2008Q1

REPORT INFORMATION
  Report Type: 
  Country: None (occurrence: None)
  Receive Date: 20080124
  Receipt Date: 20080115
  Transmission Date: 20080703
  Serious: Yes (Life-Threatening)
  Sender: FDA-Public Use
  Company Number: JP-ELI_LILLY_AND_COMPANY-JP200712005089

PATIENT
  Sex: Male
  Weight: 69.55 kg

DRUGS (10)
  1. PEMETREXED [Suspect]
     Indication: PLEURAL MESOTHELIOMA MALIGNANT
     Dosage: 500 MG/M2, UNK
     Route: 042
     Dates: start: 20030723, end: 20071030
  2. CISPLATIN [Suspect]
     Indication: PLEURAL MESOTHELIOMA MALIGNANT
     Dosage: 125 MG, OTHER
     Route: 042
     Dates: start: 20070723, end: 20070723
  3. CISPLATIN [Suspect]
     Dosage: 100 MG, OTHER
     Route: 042
     Dates: start: 20070813, end: 20071002
  4. CISPLATIN [Suspect]
     Dosage: 80 MG, OTHER
     Route: 042
     Dates: start: 20071030, end: 20071030
  5. PANVITAN [Concomitant]
     Dosage: 1 G, OTHER
     Route: 048
     Dates: start: 20070715, end: 20071212
  6. MASBLON H [Concomitant]
     Dosage: UNK, OTHER
     Route: 030
     Dates: start: 20070715, end: 20071115
  7. DUROTEP [Concomitant]
     Indication: CANCER PAIN
     Dosage: 10 MG, 2/W
     Route: 062
     Dates: start: 20070916
  8. OXYCONTIN [Concomitant]
     Indication: CANCER PAIN
     Dosage: 80 MG, DAILY (1/D)
     Route: 048
  9. PARIET /JPN/ [Concomitant]
     Indication: GASTRITIS
     Dosage: 10 MG, DAILY (1/D)
     Route: 048
     Dates: start: 20070928
  10. STARSIS [Concomitant]
     Indication: DIABETES MELLITUS
     Dosage: 90 MG, DAILY (1/D)
     Route: 048
     Dates: start: 20071022

REACTIONS (8)
  - ANOREXIA [None]
  - CANDIDIASIS [None]
  - CONDITION AGGRAVATED [None]
  - INTERSTITIAL LUNG DISEASE [None]
  - OSTEOSYNTHESIS [None]
  - PLEURAL MESOTHELIOMA MALIGNANT [None]
  - RESPIRATORY FAILURE [None]
  - THROMBOCYTOPENIA [None]
